FAERS Safety Report 9216381 (Version 2)
Quarter: 2013Q3

REPORT INFORMATION
  Report Type: Spontaneous
  Country: US (occurrence: None)
  Receive Date: 20130402
  Receipt Date: 20130715
  Transmission Date: 20140515
  Serious: Yes (Hospitalization)
  Sender: FDA-Public Use
  Company Number: 2013US0117

PATIENT
  Age: 3 Year
  Sex: Female

DRUGS (1)
  1. ORFADIN [Suspect]
     Indication: TYROSINAEMIA
     Dosage: 24 MG, 2 IN 1 D, ORAL
     Route: 048
     Dates: start: 20100430

REACTIONS (1)
  - Pancreatitis chronic [None]
